FAERS Safety Report 19967668 (Version 2)
Quarter: 2021Q4

REPORT INFORMATION
  Report Type: Spontaneous
  Country: KR (occurrence: KR)
  Receive Date: 20211019
  Receipt Date: 20211026
  Transmission Date: 20220303
  Serious: Yes (Hospitalization, Other)
  Sender: FDA-Public Use
  Company Number: KR-MACLEODS PHARMACEUTICALS US LTD-MAC2021032985

PATIENT

DRUGS (3)
  1. LIDOCAINE [Suspect]
     Active Substance: LIDOCAINE
     Indication: Joint manipulation
     Dosage: 6 MILLILITER, SINGLE ((INJECTION, 2%, TOTAL)
     Route: 065
  2. LIDOCAINE [Suspect]
     Active Substance: LIDOCAINE
     Indication: Nerve block
  3. LIDOCAINE [Suspect]
     Active Substance: LIDOCAINE
     Indication: Local anaesthesia

REACTIONS (4)
  - Nerve root injury cervical [Recovering/Resolving]
  - Local anaesthetic systemic toxicity [Recovering/Resolving]
  - Neurotoxicity [Recovering/Resolving]
  - Neuralgia [Recovering/Resolving]
